FAERS Safety Report 21579346 (Version 1)
Quarter: 2022Q4

REPORT INFORMATION
  Report Type: Spontaneous
  Country: US (occurrence: None)
  Receive Date: 20221110
  Receipt Date: 20221110
  Transmission Date: 20230113
  Serious: No
  Sender: FDA-Public Use
  Company Number: 2022A269408

PATIENT
  Age: 19026 Day
  Sex: Female
  Weight: 144.2 kg

DRUGS (1)
  1. FASENRA [Suspect]
     Active Substance: BENRALIZUMAB
     Indication: Asthma
     Dosage: 30MG/ML EVERY FOUR WEEKS
     Route: 058
     Dates: start: 20220525, end: 20220729

REACTIONS (4)
  - Headache [Recovered/Resolved]
  - Blood pressure increased [Recovered/Resolved]
  - Incorrect dose administered by device [Unknown]
  - Device leakage [Unknown]

NARRATIVE: CASE EVENT DATE: 20220726
